FAERS Safety Report 8199323-2 (Version None)
Quarter: 2012Q1

REPORT INFORMATION
  Report Type: 
  Country: None (occurrence: None)
  Receive Date: 20120309
  Receipt Date: 20120302
  Transmission Date: 20120608
  Serious: Yes (Other)
  Sender: FDA-Public Use
  Company Number: CZ-ROXANE LABORATORIES, INC.-2012-RO-00780RO

PATIENT
  Age: 24 Year
  Sex: Female

DRUGS (5)
  1. RITONAVIR [Suspect]
     Indication: HIV TEST POSITIVE
     Dosage: 200 MG
  2. FLUTICASONE PROPIONATE [Suspect]
     Indication: ASTHMA
     Dosage: 200 MCG
     Route: 055
  3. LAMIVUDINE [Suspect]
     Indication: HIV TEST POSITIVE
     Dosage: 300 MG
  4. ZIDOVUDINE [Suspect]
     Indication: HIV TEST POSITIVE
     Dosage: 500 MG
  5. LOPINAVIR [Suspect]
     Indication: HIV TEST POSITIVE
     Dosage: 400 MG

REACTIONS (2)
  - CUSHING'S SYNDROME [None]
  - AMENORRHOEA [None]
